FAERS Safety Report 20428485 (Version 1)
Quarter: 2022Q1

REPORT INFORMATION
  Report Type: Spontaneous
  Country: IL (occurrence: IL)
  Receive Date: 20220204
  Receipt Date: 20220204
  Transmission Date: 20220423
  Serious: Yes (Other)
  Sender: FDA-Public Use
  Company Number: IL-LUPIN PHARMACEUTICALS INC.-2022-01388

PATIENT
  Age: 64 Year
  Sex: Male

DRUGS (6)
  1. ZOLPIDEM [Suspect]
     Active Substance: ZOLPIDEM TARTRATE
     Indication: Panic disorder
     Dosage: 10 MG, QD
     Route: 065
  2. ZOLPIDEM [Suspect]
     Active Substance: ZOLPIDEM TARTRATE
     Indication: Generalised anxiety disorder
  3. ALPRAZOLAM [Suspect]
     Active Substance: ALPRAZOLAM
     Indication: Generalised anxiety disorder
     Dosage: 2 MG, UNK
     Route: 065
  4. ALPRAZOLAM [Suspect]
     Active Substance: ALPRAZOLAM
     Indication: Panic disorder
  5. CLONAZEPAM [Suspect]
     Active Substance: CLONAZEPAM
     Indication: Generalised anxiety disorder
     Dosage: 6 MG
     Route: 065
  6. CLONAZEPAM [Suspect]
     Active Substance: CLONAZEPAM
     Indication: Panic disorder

REACTIONS (2)
  - Drug use disorder [Unknown]
  - Drug withdrawal syndrome [Recovering/Resolving]
